FAERS Safety Report 9528959 (Version 1)
Quarter: 2013Q3

REPORT INFORMATION
  Report Type: Spontaneous
  Country: US (occurrence: US)
  Receive Date: 20130917
  Receipt Date: 20130917
  Transmission Date: 20140515
  Serious: No
  Sender: FDA-Public Use
  Company Number: US-BANPHARM-20131245

PATIENT
  Age: 17 Year
  Sex: Male
  Weight: 106.59 kg

DRUGS (2)
  1. ZYRTEC LIQUID GELS 10 MG [Suspect]
     Indication: SEASONAL ALLERGY
     Dosage: 1 DF, QD,
     Route: 048
     Dates: start: 20130417, end: 20130421
  2. NYQUIL [Concomitant]
     Indication: HYPERSENSITIVITY
     Dosage: 15 ML, ONCE,
     Dates: start: 20130418

REACTIONS (1)
  - Drug effect incomplete [Unknown]
